FAERS Safety Report 13627241 (Version 3)
Quarter: 2017Q2

REPORT INFORMATION
  Report Type: Spontaneous
  Country: US (occurrence: US)
  Receive Date: 20170607
  Receipt Date: 20170629
  Transmission Date: 20170830
  Serious: Yes (Death, Hospitalization)
  Sender: FDA-Public Use
  Company Number: US-PFIZER INC-2017248168

PATIENT
  Age: 67 Year
  Sex: Male

DRUGS (18)
  1. VFEND [Suspect]
     Active Substance: VORICONAZOLE
     Indication: INFECTION
     Dosage: 400 MG, 2X/DAY (200MG TWO TABLET BY MOUTH EVERY 12 HOURS)
     Route: 048
     Dates: start: 201605, end: 201610
  2. TRAZODONE [Concomitant]
     Active Substance: TRAZODONE HYDROCHLORIDE
     Dosage: UNK
  3. CLONAZEPAM. [Concomitant]
     Active Substance: CLONAZEPAM
     Dosage: UNK
  4. OXYCODONE [Concomitant]
     Active Substance: OXYCODONE
     Dosage: UNK
  5. ONDANSETRON HCL [Concomitant]
     Active Substance: ONDANSETRON HYDROCHLORIDE
     Dosage: UNK
  6. CEPHALEXIN /00145501/ [Concomitant]
     Active Substance: CEPHALEXIN
     Dosage: UNK
  7. VORICONAZOLE. [Concomitant]
     Active Substance: VORICONAZOLE
     Dosage: UNK
  8. HYOSCYAMINE SULFATE. [Concomitant]
     Active Substance: HYOSCYAMINE SULFATE
     Dosage: UNK
  9. ROPINIROLE HCL [Concomitant]
     Active Substance: ROPINIROLE HYDROCHLORIDE
     Dosage: UNK
     Dates: start: 201606, end: 20170527
  10. ACYCLOVIR /00587301/ [Concomitant]
     Active Substance: ACYCLOVIR
     Dosage: UNK
  11. SORBITOL. [Concomitant]
     Active Substance: SORBITOL
     Dosage: UNK
  12. VFEND [Suspect]
     Active Substance: VORICONAZOLE
     Dosage: 400 MG, 2X/DAY (200MG TWO TABLET BY MOUTH EVERY 12 HOURS)
     Route: 048
     Dates: start: 201610, end: 20170526
  13. LEVOFLOXACIN. [Concomitant]
     Active Substance: LEVOFLOXACIN
     Dosage: UNK
  14. ESCITALOPRAM [Concomitant]
     Active Substance: ESCITALOPRAM OXALATE
     Dosage: UNK
  15. ROZEREM [Concomitant]
     Active Substance: RAMELTEON
     Dosage: UNK
  16. TRAMADOL. [Concomitant]
     Active Substance: TRAMADOL
     Dosage: UNK
  17. TAMSULOSIN [Concomitant]
     Active Substance: TAMSULOSIN
     Dosage: UNK
  18. ADVAIR HFA [Concomitant]
     Active Substance: FLUTICASONE PROPIONATE\SALMETEROL XINAFOATE
     Dosage: UNK

REACTIONS (7)
  - Cerebral haemorrhage [Fatal]
  - Haemorrhagic diathesis [Fatal]
  - Weight decreased [Recovered/Resolved]
  - Asthenia [Not Recovered/Not Resolved]
  - Malaise [Recovered/Resolved]
  - Fall [Fatal]
  - Coagulopathy [Fatal]

NARRATIVE: CASE EVENT DATE: 201605
